FAERS Safety Report 7156283 (Version 5)
Quarter: 2013Q1

REPORT INFORMATION
  Report Type: Spontaneous
  Country: US (occurrence: US)
  Receive Date: 20091023
  Receipt Date: 20130205
  Transmission Date: 20140127
  Serious: Yes (Hospitalization, Other)
  Sender: FDA-Public Use
  Company Number: US-ELI_LILLY_AND_COMPANY-US200910004071

PATIENT
  Sex: Male
  Weight: 88.89 kg

DRUGS (7)
  1. BYETTA [Suspect]
     Indication: DIABETES MELLITUS
     Dosage: 5 UG, BID
     Route: 058
     Dates: start: 20070403
  2. BYETTA [Suspect]
     Dosage: 10 UG, BID
     Route: 058
     Dates: start: 20070702
  3. METFORMIN [Concomitant]
     Indication: DIABETES MELLITUS
     Dosage: 500 MG, BID
  4. DIOVAN [Concomitant]
     Indication: HYPERTENSION
     Dosage: 60 MG, QD
  5. DIOVAN [Concomitant]
     Dosage: 160 MG, QD
  6. JANUVIA [Concomitant]
     Indication: DIABETES MELLITUS
  7. VIAGRA [Concomitant]

REACTIONS (10)
  - Pancreatitis chronic [Unknown]
  - Pancreatic pseudocyst [Unknown]
  - Pancreatitis [Not Recovered/Not Resolved]
  - Renal disorder [Unknown]
  - Weight decreased [Not Recovered/Not Resolved]
  - Fatigue [Not Recovered/Not Resolved]
  - Gallbladder disorder [Unknown]
  - Abdominal pain [Not Recovered/Not Resolved]
  - Nausea [Not Recovered/Not Resolved]
  - Vomiting [Not Recovered/Not Resolved]
